FAERS Safety Report 6999767-8 (Version None)
Quarter: 2010Q3

REPORT INFORMATION
  Report Type: 
  Country: None (occurrence: None)
  Receive Date: 20100920
  Receipt Date: 20100126
  Transmission Date: 20110219
  Serious: No
  Sender: FDA-Public Use
  Company Number: US-ASTRAZENECA-2010SE03552

PATIENT
  Age: 46 Year
  Sex: Female
  Weight: 59 kg

DRUGS (4)
  1. SEROQUEL XR [Suspect]
     Indication: BIPOLAR DISORDER
     Route: 048
     Dates: start: 20091128
  2. GENERIC CELEXA [Concomitant]
  3. TRAZODONE HCL [Concomitant]
  4. HYDROCODONE [Concomitant]

REACTIONS (3)
  - DYSPEPSIA [None]
  - EYE SWELLING [None]
  - MALAISE [None]
